FAERS Safety Report 8697546 (Version 2)
Quarter: 2012Q4

REPORT INFORMATION
  Report Type: 
  Country: None (occurrence: US)
  Receive Date: 20120801
  Receipt Date: 20120906
  Transmission Date: 20130627
  Serious: Yes (Other)
  Sender: FDA-Public Use
  Company Number: US-TEVA-349869USA

PATIENT
  Age: 63 None
  Sex: Female
  Weight: 90.8 kg

DRUGS (4)
  1. COPAXONE [Suspect]
     Indication: MULTIPLE SCLEROSIS
     Dosage: 20 Milligram Daily;
     Route: 058
     Dates: start: 2001
  2. LORTAB [Concomitant]
  3. NEURONTIN [Concomitant]
     Indication: MULTIPLE SCLEROSIS
  4. HYDROCHLOROTHIAZIDE [Concomitant]
     Indication: BLOOD PRESSURE INCREASED

REACTIONS (2)
  - Basal cell carcinoma [Unknown]
  - Skin cancer [Unknown]
